FAERS Safety Report 6809924-9 (Version None)
Quarter: 2010Q2

REPORT INFORMATION
  Report Type: 
  Country: None (occurrence: None)
  Receive Date: 20100630
  Receipt Date: 20100618
  Transmission Date: 20101027
  Serious: Yes (Hospitalization)
  Sender: FDA-Public Use
  Company Number: A0790008A

PATIENT
  Age: 64 Year
  Sex: Male

DRUGS (8)
  1. AVANDIA [Suspect]
     Dosage: 4MG TWICE PER DAY
     Route: 048
     Dates: start: 20000101, end: 20080120
  2. METFORMIN HCL [Concomitant]
  3. LANTUS [Concomitant]
  4. TRAZODONE HYDROCHLORIDE [Concomitant]
  5. SPIRIVA [Concomitant]
  6. TRICOR [Concomitant]
  7. GLUCOTROL [Concomitant]
  8. AVAPRO [Concomitant]

REACTIONS (3)
  - CARDIAC DISORDER [None]
  - CARDIOVASCULAR DISORDER [None]
  - THROMBOSIS [None]
